FAERS Safety Report 23327204 (Version 1)
Quarter: 2023Q4

REPORT INFORMATION
  Report Type: Spontaneous
  Country: BE (occurrence: BE)
  Receive Date: 20231221
  Receipt Date: 20231221
  Transmission Date: 20240109
  Serious: Yes (Disabling)
  Sender: FDA-Public Use
  Company Number: None

PATIENT
  Sex: Male

DRUGS (1)
  1. MEDROL [Suspect]
     Active Substance: METHYLPREDNISOLONE
     Indication: Liver disorder
     Dosage: 32 MG, 1X/DAY
     Route: 048
     Dates: start: 20231013

REACTIONS (6)
  - Muscular weakness [Unknown]
  - Constipation [Unknown]
  - Abdominal distension [Unknown]
  - Rash [Unknown]
  - Affective disorder [Unknown]
  - Off label use [Unknown]

NARRATIVE: CASE EVENT DATE: 20231013
